FAERS Safety Report 13011240 (Version 2)
Quarter: 2018Q1

REPORT INFORMATION
  Report Type: Spontaneous
  Country: US (occurrence: US)
  Receive Date: 20161208
  Receipt Date: 20180306
  Transmission Date: 20180508
  Serious: Yes (Hospitalization)
  Sender: FDA-Public Use
  Company Number: US-ASTRAZENECA-2016SF28892

PATIENT
  Age: 637 Day
  Sex: Male
  Weight: 10.3 kg

DRUGS (3)
  1. SYNAGIS [Suspect]
     Active Substance: PALIVIZUMAB
     Indication: PROPHYLAXIS
     Dosage: 100.0MG UNKNOWN
     Route: 030
  2. SYNAGIS [Suspect]
     Active Substance: PALIVIZUMAB
     Indication: PROPHYLAXIS
     Dosage: 15.0MG/KG UNKNOWN
     Route: 030
     Dates: start: 20171103
  3. SYNAGIS [Suspect]
     Active Substance: PALIVIZUMAB
     Indication: PROPHYLAXIS
     Dosage: 100 MG IN 1 ML
     Route: 030
     Dates: start: 20151105, end: 20161102

REACTIONS (3)
  - Respiratory syncytial virus bronchiolitis [Unknown]
  - Pneumonia [Unknown]
  - Drug dose omission [Unknown]

NARRATIVE: CASE EVENT DATE: 20161130
